FAERS Safety Report 23852935 (Version 1)
Quarter: 2024Q2

REPORT INFORMATION
  Report Type: Spontaneous
  Country: CA (occurrence: CA)
  Receive Date: 20240514
  Receipt Date: 20240514
  Transmission Date: 20240716
  Serious: Yes (Death)
  Sender: FDA-Public Use
  Company Number: CA-PFIZER INC-202201049506

PATIENT
  Age: 85 Year
  Sex: Male
  Weight: 66 kg

DRUGS (7)
  1. RUXIENCE [Suspect]
     Active Substance: RITUXIMAB-PVVR
     Indication: Glomerulonephritis
     Dosage: UNK (RECEIVED 2 PREVIOUS TREATMENTS AT THE HOSPITAL)
     Route: 042
  2. RUXIENCE [Suspect]
     Active Substance: RITUXIMAB-PVVR
     Dosage: UNK (RECEIVED 2 PREVIOUS TREATMENTS AT THE HOSPITAL)
     Route: 042
  3. RUXIENCE [Suspect]
     Active Substance: RITUXIMAB-PVVR
     Dosage: 1000 MG, EVERY 6 MONTHS (ONE DOSE EVERY 6 MONTHS)
     Route: 042
     Dates: start: 20220111
  4. RUXIENCE [Suspect]
     Active Substance: RITUXIMAB-PVVR
     Dosage: 1000 MG, EVERY 6 MONTHS (ONE DOSE EVERY 6 MONTHS)
     Route: 042
     Dates: start: 20230111
  5. RUXIENCE [Suspect]
     Active Substance: RITUXIMAB-PVVR
     Dosage: 1000 MG, EVERY 6 MONTHS (ONE DOSE EVERY 6 MONTHS)
     Route: 042
     Dates: start: 20230710
  6. RUXIENCE [Suspect]
     Active Substance: RITUXIMAB-PVVR
     Dosage: 1000 MG, ONE DOSE EVERY 6 MONTHS
     Dates: start: 20240112
  7. PREDNISONE [Concomitant]
     Active Substance: PREDNISONE
     Dosage: UNK, DISCONTINUED

REACTIONS (3)
  - Renal failure [Fatal]
  - General physical health deterioration [Unknown]
  - Off label use [Unknown]

NARRATIVE: CASE EVENT DATE: 20240504
